FAERS Safety Report 5893333-3 (Version None)
Quarter: 2008Q3

REPORT INFORMATION
  Report Type: 
  Country: None (occurrence: None)
  Receive Date: 20080922
  Receipt Date: 20080922
  Transmission Date: 20090109
  Serious: Yes (Other)
  Sender: FDA-Public Use
  Company Number: None

PATIENT
  Sex: Male
  Weight: 81.6475 kg

DRUGS (1)
  1. DIGOXIN [Suspect]
     Indication: SUPRAVENTRICULAR TACHYCARDIA
     Dosage: 1 TABLET DAILY PO
     Route: 048
     Dates: start: 19980615, end: 20080822

REACTIONS (11)
  - ABDOMINAL PAIN UPPER [None]
  - ASTHENIA [None]
  - DEAFNESS UNILATERAL [None]
  - DIZZINESS [None]
  - EAR PAIN [None]
  - HYPOACUSIS [None]
  - MALAISE [None]
  - NAUSEA [None]
  - TINNITUS [None]
  - VISION BLURRED [None]
  - VOMITING [None]
